FAERS Safety Report 6091416-9 (Version None)
Quarter: 2009Q1

REPORT INFORMATION
  Report Type: 
  Country: None (occurrence: None)
  Receive Date: 20090225
  Receipt Date: 20090122
  Transmission Date: 20090719
  Serious: No
  Sender: FDA-Public Use
  Company Number: A0765327A

PATIENT
  Sex: Male

DRUGS (1)
  1. VERAMYST [Suspect]
     Indication: NASAL SEPTUM DEVIATION

REACTIONS (2)
  - EPISTAXIS [None]
  - HAEMOPTYSIS [None]
